FAERS Safety Report 6344263-4 (Version None)
Quarter: 2009Q3

REPORT INFORMATION
  Report Type: 
  Country: None (occurrence: None)
  Receive Date: 20090904
  Receipt Date: 20090904
  Transmission Date: 20100115
  Serious: Yes (Death, Life-Threatening, Hospitalization, Other)
  Sender: FDA-Public Use
  Company Number: None

PATIENT
  Age: 20 Year
  Sex: Female

DRUGS (21)
  1. TRIMETHOPRIM + SULFAMETHOXAZOLE [Suspect]
     Indication: URINARY TRACT INFECTION
     Dosage: 1 DS TABLET TWICE DAILY PO
     Route: 048
  2. CIPROFLAXACIN [Suspect]
  3. CYCLOSPORINE [Concomitant]
  4. HYDROMORPHONE [Concomitant]
  5. PHENYLEPHRIN [Concomitant]
  6. NOREPINEPHRIN [Concomitant]
  7. VASOPRESSIN [Concomitant]
  8. ALBUMIN (HUMAN) [Concomitant]
  9. CEFAZOLIN [Concomitant]
  10. COLESTIN [Concomitant]
  11. LACTATED RINGER'S [Concomitant]
  12. METHADONE HCL [Concomitant]
  13. MAGNESIUM [Concomitant]
  14. MIDAZOLAM HCL [Concomitant]
  15. VITAMIN K TAB [Concomitant]
  16. RANITIDINE [Concomitant]
  17. IV FUROSEMIDE [Concomitant]
  18. TETNUS SHOT [Concomitant]
  19. TIGECYCLINE [Concomitant]
  20. TORBAMYCIN EYE DROP [Concomitant]
  21. VANCOMYCIN [Concomitant]

REACTIONS (7)
  - CARDIOVASCULAR DISORDER [None]
  - PNEUMONIA ASPIRATION [None]
  - PULMONARY OEDEMA [None]
  - RENAL FAILURE ACUTE [None]
  - RESPIRATORY DISORDER [None]
  - SEPSIS [None]
  - TOXIC EPIDERMAL NECROLYSIS [None]
